FAERS Safety Report 23494499 (Version 1)
Quarter: 2024Q1

REPORT INFORMATION
  Report Type: Spontaneous
  Country: US (occurrence: None)
  Receive Date: 20240207
  Receipt Date: 20240207
  Transmission Date: 20240410
  Serious: Yes (Death)
  Sender: FDA-Public Use
  Company Number: None

PATIENT
  Age: 80 Year
  Sex: Male

DRUGS (1)
  1. LENALIDOMIDE [Suspect]
     Active Substance: LENALIDOMIDE
     Indication: Mantle cell lymphoma
     Dosage: 20MG QD ORAL?
     Route: 048
     Dates: start: 20231016, end: 20231228

REACTIONS (2)
  - Hospice care [None]
  - Death [None]

NARRATIVE: CASE EVENT DATE: 20231228
